FAERS Safety Report 15925293 (Version 1)
Quarter: 2019Q1

REPORT INFORMATION
  Report Type: Spontaneous
  Country: US (occurrence: US)
  Receive Date: 20190206
  Receipt Date: 20190206
  Transmission Date: 20190417
  Serious: Yes (Death)
  Sender: FDA-Public Use
  Company Number: None

PATIENT
  Age: 56 Year
  Sex: Female
  Weight: 42.75 kg

DRUGS (10)
  1. LIBTAYO [Suspect]
     Active Substance: CEMIPLIMAB-RWLC
     Indication: CHOLANGIOCARCINOMA
     Dosage: ?          OTHER FREQUENCY:ONCE EVERY 3 WEEKS;?
     Route: 042
     Dates: start: 20190103
  2. GAS-X [Concomitant]
     Active Substance: DIMETHICONE
  3. ONDANSETRON [Concomitant]
     Active Substance: ONDANSETRON
  4. LIBTAYO [Suspect]
     Active Substance: CEMIPLIMAB-RWLC
     Indication: HEPATIC CANCER
     Dosage: ?          OTHER FREQUENCY:ONCE EVERY 3 WEEKS;?
     Route: 042
     Dates: start: 20190103
  5. TRAMADOL. [Concomitant]
     Active Substance: TRAMADOL
  6. MIRALAX [Concomitant]
     Active Substance: POLYETHYLENE GLYCOL 3350
  7. NEXIUM [Concomitant]
     Active Substance: ESOMEPRAZOLE MAGNESIUM
  8. PROCHLORPERAZINE. [Concomitant]
     Active Substance: PROCHLORPERAZINE
  9. OXYCODONE [Concomitant]
     Active Substance: OXYCODONE
  10. IBUPROFEN. [Concomitant]
     Active Substance: IBUPROFEN

REACTIONS (1)
  - Disease progression [None]
